FAERS Safety Report 25684482 (Version 2)
Quarter: 2025Q3

REPORT INFORMATION
  Report Type: Spontaneous
  Country: JP (occurrence: JP)
  Receive Date: 20250815
  Receipt Date: 20250917
  Transmission Date: 20251021
  Serious: Yes (Hospitalization, Other)
  Sender: BRISTOL-MYERS SQUIBB COMPANY
  Company Number: JP-TAIHO-2025-008471

PATIENT
  Sex: Female

DRUGS (4)
  1. ABRAXANE [Suspect]
     Active Substance: PACLITAXEL
     Indication: Pancreatic carcinoma metastatic
     Dosage: 190 MG/WEEK, WITH SUSPENSION, CYCLE 3?DAILY DOSE: 190 MILLIGRAM(S)?01-JUL-2025 (SUSPENDED)
     Dates: start: 20250617, end: 20250624
  2. ABRAXANE [Suspect]
     Active Substance: PACLITAXEL
     Dosage: NI, CYCLE 3?22-JUL-2025 (SUSPENDED)
     Dates: start: 20250708, end: 20250715
  3. ABRAXANE [Suspect]
     Active Substance: PACLITAXEL
     Dosage: NI, CYCLE 3
     Dates: start: 20250731
  4. GEMCITABINE HYDROCHLORIDE [Suspect]
     Active Substance: GEMCITABINE HYDROCHLORIDE
     Indication: Pancreatic carcinoma metastatic

REACTIONS (1)
  - Drug-induced liver injury [Recovered/Resolved]

NARRATIVE: CASE EVENT DATE: 20250807
